FAERS Safety Report 10206316 (Version 5)
Quarter: 2014Q3

REPORT INFORMATION
  Report Type: Report from Study
  Country: AU (occurrence: AU)
  Receive Date: 20140530
  Receipt Date: 20140711
  Transmission Date: 20150326
  Serious: Yes (Hospitalization)
  Sender: FDA-Public Use
  Company Number: PHHY2014AU063253

PATIENT
  Age: 67 Year
  Sex: Male

DRUGS (8)
  1. ATORVASTATIN [Concomitant]
     Active Substance: ATORVASTATIN
     Dosage: 40 MG, AT NIGHT
  2. METOPROLOL [Concomitant]
     Active Substance: METOPROLOL
     Dosage: UNK UKN, UNK
  3. GLYCERYL TRINITRATE [Concomitant]
     Active Substance: NITROGLYCERIN
     Dosage: 400 UG, AT AFTERNOON
  4. THIAMINE [Concomitant]
     Active Substance: THIAMINE
     Dosage: 100 MG, AT MORNING
  5. METOPROLOL [Concomitant]
     Active Substance: METOPROLOL
     Dosage: 50 MG, BID
  6. SANDOSTATIN LAR DEPOT [Suspect]
     Active Substance: OCTREOTIDE ACETATE
     Indication: CARCINOID SYNDROME
     Dosage: 30 MG
     Route: 030
  7. ASPIRIN. [Concomitant]
     Active Substance: ASPIRIN
     Dosage: 100 MG, AT MORNING
  8. VANDETANIB. [Concomitant]
     Active Substance: VANDETANIB
     Dosage: 3 DF, AT MORNING

REACTIONS (9)
  - Campylobacter infection [Recovering/Resolving]
  - Neck pain [Recovering/Resolving]
  - Chills [Recovering/Resolving]
  - Blood glucose increased [Recovering/Resolving]
  - Infection [Recovering/Resolving]
  - Cholelithiasis [Recovering/Resolving]
  - Malaise [Recovering/Resolving]
  - Diabetes mellitus [Recovering/Resolving]
  - Myocardial necrosis marker increased [Recovering/Resolving]

NARRATIVE: CASE EVENT DATE: 20140501
